FAERS Safety Report 22900727 (Version 6)
Quarter: 2024Q1

REPORT INFORMATION
  Report Type: Spontaneous
  Country: JP (occurrence: JP)
  Receive Date: 20230904
  Receipt Date: 20240126
  Transmission Date: 20240409
  Serious: Yes (Other)
  Sender: FDA-Public Use
  Company Number: JP-ASTELLAS-2023JP010181

PATIENT
  Age: 62 Year
  Sex: Female

DRUGS (6)
  1. MIRABEGRON [Suspect]
     Active Substance: MIRABEGRON
     Indication: Hypertonic bladder
     Dosage: 25 MG, ONCE DAILY, AFTER BREAKFAST
     Route: 048
     Dates: start: 20230501, end: 20230508
  2. MIRABEGRON [Suspect]
     Active Substance: MIRABEGRON
     Indication: Hypertonic bladder
     Dosage: 50 MG, ONCE DAILY, AFTER BREAKFAST
     Route: 048
     Dates: start: 20230509, end: 20230828
  3. VIBEGRON [Concomitant]
     Active Substance: VIBEGRON
     Indication: Pollakiuria
     Dosage: UNK UNK, UNKNOWN FREQ.
     Route: 065
  4. TOVIAZ [Concomitant]
     Active Substance: FESOTERODINE FUMARATE
     Indication: Micturition urgency
     Dosage: 4 MG, ONCE DAILY, AFTER BREAKFAST
     Route: 048
     Dates: start: 20230428, end: 20230430
  5. Choreito [Concomitant]
     Indication: Micturition urgency
     Dosage: 2.5 G, THRICE DAILY, BEFORE EVERY MEAL
     Route: 048
     Dates: start: 20230428, end: 20230430
  6. Choreito [Concomitant]
     Indication: Urinary retention
     Dosage: 2.5 G, TWICE DAILY, BEFORE MORNING AND EVENING
     Route: 048
     Dates: start: 20230523, end: 20230730

REACTIONS (3)
  - Arrhythmia [Recovering/Resolving]
  - Prescribed underdose [Unknown]
  - Off label use [Unknown]

NARRATIVE: CASE EVENT DATE: 20230501
